FAERS Safety Report 7331029-1 (Version None)
Quarter: 2011Q1

REPORT INFORMATION
  Report Type: 
  Country: None (occurrence: None)
  Receive Date: 20110228
  Receipt Date: 20110228
  Transmission Date: 20110831
  Serious: No
  Sender: FDA-Public Use
  Company Number: None

PATIENT
  Sex: Male
  Weight: 83.9154 kg

DRUGS (1)
  1. AMOXICILLIN [Suspect]
     Indication: SINUSITIS
     Dosage: 2 PILLS 3 TIMES A DAY
     Dates: start: 20110107

REACTIONS (5)
  - HAEMORRHAGE [None]
  - SWELLING FACE [None]
  - ABDOMINAL PAIN UPPER [None]
  - HYPERSENSITIVITY [None]
  - OEDEMA PERIPHERAL [None]
